FAERS Safety Report 4263822-6 (Version None)
Quarter: 2004Q1

REPORT INFORMATION
  Report Type: 
  Country: None (occurrence: None)
  Receive Date: 20040105
  Receipt Date: 20040105
  Transmission Date: 20041129
  Serious: Yes (Other)
  Sender: FDA-Public Use
  Company Number: None

PATIENT
  Age: 57 Year
  Sex: Female

DRUGS (1)
  1. MAGNEVIST [Suspect]
     Dosage: 10 ML VIAL

REACTIONS (4)
  - COUGH [None]
  - DYSPNOEA [None]
  - NAUSEA [None]
  - PARAESTHESIA ORAL [None]
